FAERS Safety Report 18906711 (Version 5)
Quarter: 2024Q3

REPORT INFORMATION
  Report Type: Spontaneous
  Country: US (occurrence: US)
  Receive Date: 20210217
  Receipt Date: 20240926
  Transmission Date: 20241016
  Serious: Yes (Other)
  Sender: PFIZER
  Company Number: US-PFIZER INC-2021143466

PATIENT
  Age: 74 Year
  Sex: Female

DRUGS (1)
  1. XELJANZ XR [Suspect]
     Active Substance: TOFACITINIB CITRATE
     Dosage: 11 MG ONCE PER DAY

REACTIONS (4)
  - Neoplasm malignant [Unknown]
  - Peripheral swelling [Unknown]
  - Pain in extremity [Unknown]
  - Alopecia [Unknown]
